FAERS Safety Report 25557425 (Version 1)
Quarter: 2025Q3

REPORT INFORMATION
  Report Type: Spontaneous
  Country: GB (occurrence: GB)
  Receive Date: 20250715
  Receipt Date: 20250715
  Transmission Date: 20251021
  Serious: Yes (Death, Other)
  Sender: ELI LILLY AND COMPANY
  Company Number: None

PATIENT
  Age: 39 Year
  Sex: Female

DRUGS (1)
  1. MOUNJARO [Suspect]
     Active Substance: TIRZEPATIDE
     Indication: Type 2 diabetes mellitus
     Dosage: 2.5MG WEEKLY
     Route: 065
     Dates: start: 202506

REACTIONS (13)
  - Portal vein thrombosis [Fatal]
  - Hepatic ischaemia [Not Recovered/Not Resolved]
  - Spleen ischaemia [Not Recovered/Not Resolved]
  - Cardiac arrest [Unknown]
  - Acidosis [Not Recovered/Not Resolved]
  - Unresponsive to stimuli [Unknown]
  - Jaundice [Unknown]
  - Lactic acidosis [Not Recovered/Not Resolved]
  - Shock [Not Recovered/Not Resolved]
  - Cholelithiasis [Unknown]
  - Hypoglycaemia [Not Recovered/Not Resolved]
  - Pancreatitis [Unknown]
  - Somnolence [Unknown]

NARRATIVE: CASE EVENT DATE: 20250603
